FAERS Safety Report 18847133 (Version 2)
Quarter: 2021Q1

REPORT INFORMATION
  Report Type: Spontaneous
  Country: US (occurrence: US)
  Receive Date: 20210204
  Receipt Date: 20210215
  Transmission Date: 20210419
  Serious: No
  Sender: FDA-Public Use
  Company Number: US-PFIZER INC-2021099927

PATIENT
  Age: 69 Year
  Sex: Female

DRUGS (1)
  1. IBRANCE [Suspect]
     Active Substance: PALBOCICLIB
     Dosage: 75 MG, CYCLIC (2 DAYS ON 1 DAY OFF FOR 3 WEEKS AND THEN 1 FULL WEEK OFF)
     Dates: start: 20200101

REACTIONS (3)
  - Platelet count decreased [Recovering/Resolving]
  - Off label use [Unknown]
  - White blood cell count decreased [Recovering/Resolving]
